FAERS Safety Report 8459637-5 (Version None)
Quarter: 2012Q2

REPORT INFORMATION
  Report Type: 
  Country: None (occurrence: None)
  Receive Date: 20120622
  Receipt Date: 20120615
  Transmission Date: 20120825
  Serious: Yes (Other)
  Sender: FDA-Public Use
  Company Number: LV-GLAXOSMITHKLINE-B0800289A

PATIENT
  Sex: Male
  Weight: 95 kg

DRUGS (3)
  1. PHENYTOIN [Concomitant]
     Indication: EPILEPSY
     Dosage: 100MG TWICE PER DAY
     Route: 048
     Dates: start: 20110921
  2. VALPROIC ACID [Concomitant]
     Indication: EPILEPSY
     Dosage: 300MG TWICE PER DAY
     Route: 048
     Dates: start: 20090430
  3. POTIGA [Suspect]
     Indication: PARTIAL SEIZURES
     Dosage: 50MG THREE TIMES PER DAY
     Route: 048
     Dates: start: 20120228, end: 20120323

REACTIONS (8)
  - LOSS OF CONSCIOUSNESS [None]
  - INCOHERENT [None]
  - HALLUCINATION, VISUAL [None]
  - PSYCHOMOTOR HYPERACTIVITY [None]
  - FAECAL INCONTINENCE [None]
  - EPILEPSY [None]
  - URINARY INCONTINENCE [None]
  - AGITATION [None]
